FAERS Safety Report 4439689-X (Version None)
Quarter: 2004Q3

REPORT INFORMATION
  Report Type: 
  Country: None (occurrence: None)
  Receive Date: 20040831
  Receipt Date: 20040818
  Transmission Date: 20050211
  Serious: Yes (Death)
  Sender: FDA-Public Use
  Company Number: 2004-0007376

PATIENT
  Age: 30 Year
  Sex: Male

DRUGS (5)
  1. ADEFOVIR DIPIVOXIL (ADEFOVIR DIPIVOXIL) [Suspect]
     Dosage: 5 MG, 1 IN 1 D,  ORAL;  10 MG, 1 IN 1 D, ORAL
     Route: 048
     Dates: start: 20031027, end: 20031111
  2. ADEFOVIR DIPIVOXIL (ADEFOVIR DIPIVOXIL) [Suspect]
     Dosage: 5 MG, 1 IN 1 D,  ORAL;  10 MG, 1 IN 1 D, ORAL
     Route: 048
     Dates: start: 20031112
  3. ZEFFIX (LAMIVUDINE) [Suspect]
     Dosage: 100 MG, 1 IN 1 D, ORAL
     Route: 048
     Dates: start: 20010725, end: 20040409
  4. AMMONIUM GLYCYRRHIZATE (GLYCYRRHIZIC ACID, AMMONIUM SALT) [Suspect]
  5. URSODEOXYCHOLIC ACID (URSODEOXYCHOLIC ACID) [Suspect]

REACTIONS (4)
  - BLOOD CREATININE INCREASED [None]
  - BLOOD UREA INCREASED [None]
  - CREATININE RENAL CLEARANCE DECREASED [None]
  - RENAL DISORDER [None]
